FAERS Safety Report 6044168-2 (Version None)
Quarter: 2009Q1

REPORT INFORMATION
  Report Type: 
  Country: None (occurrence: None)
  Receive Date: 20090120
  Receipt Date: 20090115
  Transmission Date: 20090719
  Serious: Yes (Life-Threatening)
  Sender: FDA-Public Use
  Company Number: FR-ASTRAZENECA-2009CG00158

PATIENT
  Age: 23463 Day
  Sex: Male

DRUGS (5)
  1. DIPRIVAN [Suspect]
     Indication: INDUCTION OF ANAESTHESIA
     Route: 042
     Dates: start: 20081209, end: 20081209
  2. KEFANDOL [Suspect]
     Route: 042
     Dates: start: 20081209, end: 20081209
  3. KETAMINE PANPHARMA [Suspect]
     Route: 042
     Dates: start: 20081209, end: 20081209
  4. ULTIVA [Suspect]
     Indication: INDUCTION OF ANAESTHESIA
     Route: 042
     Dates: start: 20081209, end: 20081209
  5. TRACRIUM [Suspect]
     Indication: INDUCTION OF ANAESTHESIA
     Route: 042
     Dates: start: 20081209, end: 20081209

REACTIONS (3)
  - BRONCHOSPASM [None]
  - OXYGEN SATURATION DECREASED [None]
  - RASH ERYTHEMATOUS [None]
